FAERS Safety Report 7001031-8 (Version None)
Quarter: 2010Q3

REPORT INFORMATION
  Report Type: 
  Country: None (occurrence: None)
  Receive Date: 20100920
  Receipt Date: 20100723
  Transmission Date: 20110219
  Serious: Yes (Hospitalization)
  Sender: FDA-Public Use
  Company Number: US-ASTRAZENECA-2009UW14361

PATIENT
  Age: 42 Year
  Sex: Male
  Weight: 96.2 kg

DRUGS (4)
  1. SEROQUEL [Suspect]
     Indication: BIPOLAR DISORDER
     Route: 048
     Dates: start: 20040101
  2. ATIVAN [Concomitant]
     Dates: start: 20091007
  3. DEPAKOTE [Concomitant]
     Dates: start: 20091007
  4. RISPERDAL [Concomitant]
     Dates: start: 20091007

REACTIONS (5)
  - BLOOD CHOLESTEROL INCREASED [None]
  - BLOOD TRIGLYCERIDES INCREASED [None]
  - HYPERLIPIDAEMIA [None]
  - PANCREATITIS [None]
  - TYPE 2 DIABETES MELLITUS [None]
